FAERS Safety Report 14112259 (Version 2)
Quarter: 2017Q4

REPORT INFORMATION
  Report Type: Report from Study
  Country: US (occurrence: US)
  Receive Date: 20171020
  Receipt Date: 20171116
  Transmission Date: 20180321
  Serious: Yes (Hospitalization, Other)
  Sender: FDA-Public Use
  Company Number: US-ACTELION-A-NJ2017-161149

PATIENT
  Age: 73 Year
  Sex: Female

DRUGS (1)
  1. UPTRAVI [Suspect]
     Active Substance: SELEXIPAG
     Indication: PULMONARY ARTERIAL HYPERTENSION
     Dosage: 800 MCG, BID
     Route: 048
     Dates: start: 20170313, end: 20171103

REACTIONS (5)
  - Cervical vertebral fracture [Unknown]
  - Loss of consciousness [Unknown]
  - Fall [Unknown]
  - Cholecystitis [Unknown]
  - Vomiting [Unknown]

NARRATIVE: CASE EVENT DATE: 20171001
